FAERS Safety Report 15307727 (Version 1)
Quarter: 2018Q3

REPORT INFORMATION
  Report Type: Spontaneous
  Country: KR (occurrence: KR)
  Receive Date: 20180822
  Receipt Date: 20180822
  Transmission Date: 20181010
  Serious: Yes (Other)
  Sender: FDA-Public Use
  Company Number: KR-ASTRAZENECA-2018SF05907

PATIENT
  Age: 76 Year
  Sex: Female

DRUGS (2)
  1. LYNPARZA [Suspect]
     Active Substance: OLAPARIB
     Route: 048
     Dates: start: 201710
  2. LYNPARZA [Suspect]
     Active Substance: OLAPARIB
     Route: 048

REACTIONS (5)
  - Carbohydrate antigen 19-9 increased [Unknown]
  - Thrombocytopenia [Unknown]
  - Dizziness [Unknown]
  - Decreased appetite [Unknown]
  - Anaemia [Unknown]
